FAERS Safety Report 8872794 (Version 1)
Quarter: 2012Q4

REPORT INFORMATION
  Report Type: Spontaneous
  Country: US (occurrence: None)
  Receive Date: 20121026
  Receipt Date: 20121026
  Transmission Date: 20130627
  Serious: No
  Sender: FDA-Public Use
  Company Number: None

PATIENT
  Age: 66 Year
  Sex: Male
  Weight: 78.2 kg

DRUGS (1)
  1. ETODOLAC [Suspect]
     Dates: start: 20120827, end: 20120904

REACTIONS (4)
  - Rash [None]
  - Urticaria [None]
  - Pruritus [None]
  - Rash erythematous [None]
